FAERS Safety Report 12923451 (Version 1)
Quarter: 2016Q4

REPORT INFORMATION
  Report Type: Spontaneous
  Country: US (occurrence: US)
  Receive Date: 20161109
  Receipt Date: 20161109
  Transmission Date: 20170207
  Serious: No
  Sender: FDA-Public Use
  Company Number: US-PFIZER INC-2016513182

PATIENT
  Age: 50 Year
  Sex: Female

DRUGS (1)
  1. DAPTOMYCIN. [Suspect]
     Active Substance: DAPTOMYCIN
     Dosage: 370 MG
     Route: 042

REACTIONS (2)
  - Renal function test abnormal [Unknown]
  - Liver function test increased [Unknown]
